FAERS Safety Report 17649078 (Version 4)
Quarter: 2022Q3

REPORT INFORMATION
  Report Type: Spontaneous
  Country: CA (occurrence: CA)
  Receive Date: 20200408
  Receipt Date: 20220928
  Transmission Date: 20221027
  Serious: Yes (Disabling, Other)
  Sender: FDA-Public Use
  Company Number: CA-SAMSUNG BIOEPIS-SB-2020-11187

PATIENT
  Age: 38 Year
  Sex: Female
  Weight: 73 kg

DRUGS (9)
  1. INFLIXIMAB [Suspect]
     Active Substance: INFLIXIMAB
     Indication: Psoriatic arthropathy
     Route: 042
  2. CELEBREX [Concomitant]
     Active Substance: CELECOXIB
     Indication: Product used for unknown indication
     Route: 065
  3. ADVIL [Concomitant]
     Active Substance: IBUPROFEN
     Indication: Product used for unknown indication
     Route: 065
  4. BENADRYL [Concomitant]
     Active Substance: DIPHENHYDRAMINE HYDROCHLORIDE
     Indication: Premedication
     Dosage: UNKNOWN
     Route: 065
  5. LEVOTHYROXINE [Concomitant]
     Active Substance: LEVOTHYROXINE
     Indication: Product used for unknown indication
     Route: 065
  6. LYRICA [Concomitant]
     Active Substance: PREGABALIN
     Indication: Product used for unknown indication
     Route: 065
  7. MOTRIN [Concomitant]
     Active Substance: IBUPROFEN
     Indication: Product used for unknown indication
     Dosage: UNKNOWN
     Route: 065
  8. PREDNISONE [Concomitant]
     Active Substance: PREDNISONE
     Indication: Product used for unknown indication
     Route: 065
  9. METHOTREXATE [Concomitant]
     Active Substance: METHOTREXATE
     Indication: Rheumatoid arthritis
     Route: 065

REACTIONS (34)
  - Abdominal discomfort [Unknown]
  - Anxiety [Unknown]
  - Chills [Unknown]
  - Dizziness [Unknown]
  - Hot flush [Unknown]
  - Pain in extremity [Unknown]
  - Blood pressure diastolic decreased [Unknown]
  - Bone marrow oedema [Unknown]
  - Carpal tunnel syndrome [Unknown]
  - Condition aggravated [Unknown]
  - Gait inability [Unknown]
  - Herpes zoster [Unknown]
  - Joint dislocation [Unknown]
  - Joint effusion [Unknown]
  - Joint range of motion decreased [Unknown]
  - Joint stiffness [Unknown]
  - Movement disorder [Unknown]
  - Muscle tightness [Unknown]
  - Osteoporosis [Unknown]
  - Pain [Unknown]
  - Renal tubular necrosis [Unknown]
  - Tissue injury [Unknown]
  - Blood pressure decreased [Unknown]
  - Feeling abnormal [Unknown]
  - Sluggishness [Unknown]
  - Weight increased [Unknown]
  - Depression [Unknown]
  - Mental disorder [Unknown]
  - Oral surgery [Unknown]
  - Surgery [Unknown]
  - Inappropriate schedule of product administration [Unknown]
  - Off label use [Unknown]
  - Intentional product use issue [Unknown]
  - Product dose omission issue [Unknown]
